FAERS Safety Report 16791467 (Version 2)
Quarter: 2019Q4

REPORT INFORMATION
  Report Type: Spontaneous
  Country: US (occurrence: US)
  Receive Date: 20190910
  Receipt Date: 20191114
  Transmission Date: 20200122
  Serious: Yes (Other)
  Sender: FDA-Public Use
  Company Number: US-PFIZER INC-2018383040

PATIENT
  Age: 68 Year
  Sex: Female

DRUGS (1)
  1. LYRICA [Suspect]
     Active Substance: PREGABALIN
     Dosage: 75 MG AT NIGHT IN ADDITION TO 150 MG 3X/DAY
     Route: 048

REACTIONS (3)
  - Nasopharyngitis [Unknown]
  - Hypoacusis [Unknown]
  - Lower respiratory tract infection [Unknown]
